FAERS Safety Report 5826060-9 (Version None)
Quarter: 2008Q3

REPORT INFORMATION
  Report Type: 
  Country: None (occurrence: None)
  Receive Date: 20080729
  Receipt Date: 20080718
  Transmission Date: 20090109
  Serious: Yes (Other)
  Sender: FDA-Public Use
  Company Number: NL-JNJFOC-20080603621

PATIENT
  Sex: Male
  Weight: 73 kg

DRUGS (3)
  1. PALIPERIDONE [Suspect]
     Route: 048
  2. PALIPERIDONE [Suspect]
     Route: 048
  3. PALIPERIDONE [Suspect]
     Indication: SCHIZOPHRENIA
     Route: 048

REACTIONS (6)
  - AUTONOMIC NERVOUS SYSTEM IMBALANCE [None]
  - HEART RATE INCREASED [None]
  - HYPERTENSION [None]
  - INFLUENZA [None]
  - MUSCLE RIGIDITY [None]
  - VOMITING [None]
